FAERS Safety Report 4761766-4 (Version None)
Quarter: 2005Q3

REPORT INFORMATION
  Report Type: 
  Country: None (occurrence: None)
  Receive Date: 20050906
  Receipt Date: 20050825
  Transmission Date: 20060218
  Serious: Yes (Other)
  Sender: FDA-Public Use
  Company Number: PHBS2005JP12486

PATIENT
  Age: 77 Year
  Sex: Male

DRUGS (1)
  1. VOLTAREN [Suspect]
     Dosage: 50 MG, UNK
     Route: 054
     Dates: start: 20050820

REACTIONS (2)
  - BLOOD PRESSURE DECREASED [None]
  - SHOCK [None]
